FAERS Safety Report 18577154 (Version 1)
Quarter: 2020Q4

REPORT INFORMATION
  Report Type: Spontaneous
  Country: CN (occurrence: CN)
  Receive Date: 20201204
  Receipt Date: 20201204
  Transmission Date: 20210114
  Serious: Yes (Hospitalization)
  Sender: FDA-Public Use
  Company Number: CN-TERSERA THERAPEUTICS LLC-2020TRS003976

PATIENT

DRUGS (8)
  1. SALVIA MILTIORRHIZA [Concomitant]
     Active Substance: HERBALS
     Indication: CORONARY ARTERY DISEASE
     Dosage: 10 DOSAGE FORM, TID
     Route: 048
     Dates: start: 20200525, end: 20201117
  2. ISOSORBIDE MONONITRATE. [Concomitant]
     Active Substance: ISOSORBIDE MONONITRATE
     Indication: CORONARY ARTERY DISEASE
     Dosage: 30 MG, QD
     Route: 048
     Dates: start: 20200525, end: 20201117
  3. CASODEX [Suspect]
     Active Substance: BICALUTAMIDE
     Indication: PROSTATE CANCER
     Dosage: 50 MG, QD
     Route: 048
     Dates: start: 20200526, end: 20200625
  4. ACARBOSE. [Concomitant]
     Active Substance: ACARBOSE
     Indication: TYPE 2 DIABETES MELLITUS
     Dosage: 100 MG, TID
     Route: 048
     Dates: start: 20200525, end: 20201117
  5. METOPROLOL SUCCINATE. [Concomitant]
     Active Substance: METOPROLOL SUCCINATE
     Indication: PULMONARY HYPERTENSION
     Dosage: 23.75 MG, QD
     Route: 048
     Dates: start: 20200525, end: 20201117
  6. TAMSULOSIN HYDROCHLORIDE. [Concomitant]
     Active Substance: TAMSULOSIN HYDROCHLORIDE
     Indication: PROSTATE CANCER
     Dosage: 0.2 MG, QD
     Route: 048
     Dates: start: 20200526, end: 20201117
  7. GOSERELIN [Suspect]
     Active Substance: GOSERELIN
     Indication: PROSTATE CANCER
     Dosage: 3.6 MG, ONCE EVERY 28 DAYS
     Route: 058
     Dates: start: 20200526, end: 20200625
  8. FEBUXOSTAT. [Concomitant]
     Active Substance: FEBUXOSTAT
     Indication: HYPERURICAEMIA
     Dosage: 40 MILLIGRAM, QD
     Route: 048
     Dates: start: 20200525, end: 20201117

REACTIONS (6)
  - Pruritus [Recovering/Resolving]
  - Chest discomfort [Recovering/Resolving]
  - Decreased appetite [Recovering/Resolving]
  - Palpitations [Recovering/Resolving]
  - Dry skin [Recovering/Resolving]
  - Dizziness [Not Recovered/Not Resolved]

NARRATIVE: CASE EVENT DATE: 20200625
